FAERS Safety Report 16398679 (Version 3)
Quarter: 2019Q3

REPORT INFORMATION
  Report Type: Spontaneous
  Country: US (occurrence: US)
  Receive Date: 20190606
  Receipt Date: 20190820
  Transmission Date: 20191004
  Serious: Yes (Hospitalization)
  Sender: FDA-Public Use
  Company Number: US-PFIZER INC-2019232901

PATIENT
  Age: 67 Year
  Sex: Female
  Weight: 93 kg

DRUGS (4)
  1. AVONEX [Concomitant]
     Active Substance: INTERFERON BETA-1A
     Dosage: 5 MG, UNK
     Dates: start: 2009
  2. TOVIAZ [Suspect]
     Active Substance: FESOTERODINE FUMARATE
     Indication: MULTIPLE SCLEROSIS
     Dosage: 8 MG, DAILY
     Route: 048
  3. TOVIAZ [Suspect]
     Active Substance: FESOTERODINE FUMARATE
     Indication: BLADDER DISORDER
     Dosage: 8 MG, 1X/DAY
     Route: 048
     Dates: start: 201808
  4. NEURONTIN [Concomitant]
     Active Substance: GABAPENTIN
     Dosage: UNK
     Dates: start: 2009

REACTIONS (6)
  - Off label use [Unknown]
  - Urinary incontinence [Unknown]
  - Pain [Unknown]
  - Product use in unapproved indication [Unknown]
  - Tremor [Unknown]
  - Musculoskeletal stiffness [Unknown]
